FAERS Safety Report 26189637 (Version 1)
Quarter: 2025Q4

REPORT INFORMATION
  Report Type: Spontaneous
  Country: US (occurrence: US)
  Receive Date: 20251223
  Receipt Date: 20251223
  Transmission Date: 20260117
  Serious: Yes (Hospitalization)
  Sender: SANOFI AVENTIS
  Company Number: US-SA-2025SA379257

PATIENT
  Age: 55 Year
  Sex: Female

DRUGS (10)
  1. DUPIXENT [Suspect]
     Active Substance: DUPILUMAB
     Indication: Asthma
     Dosage: 300 MG, QOW
     Route: 058
     Dates: start: 20240223
  2. ABILIFY [Concomitant]
     Active Substance: ARIPIPRAZOLE
  3. ALPRAZOLAM [Concomitant]
     Active Substance: ALPRAZOLAM
  4. COREG [Concomitant]
     Active Substance: CARVEDILOL
  5. CYMBALTA [Concomitant]
     Active Substance: DULOXETINE HYDROCHLORIDE
  6. DILTIAZEM [Concomitant]
     Active Substance: DILTIAZEM
  7. DIPHENHYDRAMINE [Concomitant]
     Active Substance: DIPHENHYDRAMINE
  8. FLUTICASONE PROPIONATE [Concomitant]
     Active Substance: FLUTICASONE PROPIONATE
  9. FOLIC ACID [Concomitant]
     Active Substance: FOLIC ACID
  10. GABAPENTIN [Concomitant]
     Active Substance: GABAPENTIN

REACTIONS (3)
  - Chronic obstructive pulmonary disease [Unknown]
  - Bronchitis [Unknown]
  - Asthma [Unknown]

NARRATIVE: CASE EVENT DATE: 20250101
